FAERS Safety Report 23883279 (Version 2)
Quarter: 2024Q2

REPORT INFORMATION
  Report Type: Spontaneous
  Country: US (occurrence: US)
  Receive Date: 20240522
  Receipt Date: 20240610
  Transmission Date: 20240717
  Serious: No
  Sender: FDA-Public Use
  Company Number: US-GSKCCFUS-Case-02014360_AE-111799

PATIENT
  Sex: Male

DRUGS (1)
  1. ADVAIR DISKUS [Suspect]
     Active Substance: FLUTICASONE PROPIONATE\SALMETEROL XINAFOATE
     Indication: Product used for unknown indication
     Dosage: UNK

REACTIONS (4)
  - Wheezing [Unknown]
  - Dyspnoea [Unknown]
  - Drug ineffective [Unknown]
  - Product complaint [Unknown]
